FAERS Safety Report 8992306 (Version 1)
Quarter: 2012Q4

REPORT INFORMATION
  Report Type: 
  Country: US (occurrence: US)
  Receive Date: 20121231
  Receipt Date: 20121231
  Transmission Date: 20130627
  Serious: Yes (Other)
  Sender: FDA-Public Use
  Company Number: US-VERTEX PHARMACEUTICALS INC.-2012-026718

PATIENT
  Sex: Female
  Weight: 68 kg

DRUGS (3)
  1. INCIVEK [Suspect]
     Indication: HEPATITIS C
     Dosage: 750 mg, tid
     Route: 048
     Dates: start: 20121013
  2. RIBAVIRIN [Suspect]
     Indication: HEPATITIS C
     Dosage: 600mg in a.m./ 400 mg in p.m.
     Route: 048
     Dates: start: 20121013
  3. PEGASYS [Suspect]
     Indication: HEPATITIS C
     Dosage: 180 ?g, qw
     Route: 058
     Dates: start: 20121013

REACTIONS (1)
  - Rash generalised [Not Recovered/Not Resolved]
